FAERS Safety Report 16094537 (Version 1)
Quarter: 2019Q2

REPORT INFORMATION
  Report Type: Spontaneous
  Country: US (occurrence: US)
  Receive Date: 20190319
  Receipt Date: 20190319
  Transmission Date: 20190711
  Serious: Yes (Other)
  Sender: FDA-Public Use
  Company Number: None

PATIENT
  Age: 61 Year
  Sex: Male
  Weight: 89.1 kg

DRUGS (1)
  1. CHOLESTYRAMINE. [Suspect]
     Active Substance: CHOLESTYRAMINE
     Indication: BLOOD CHOLESTEROL INCREASED
     Dosage: ?          QUANTITY:2 SCOOPFUL;?
     Route: 048
     Dates: start: 20190310, end: 20190314

REACTIONS (7)
  - Diarrhoea [None]
  - Chills [None]
  - Product quality issue [None]
  - Vomiting [None]
  - Nausea [None]
  - Pyrexia [None]
  - Hyperhidrosis [None]

NARRATIVE: CASE EVENT DATE: 20190310
